FAERS Safety Report 25482444 (Version 3)
Quarter: 2025Q3

REPORT INFORMATION
  Report Type: Report from Study
  Country: US (occurrence: US)
  Receive Date: 20250626
  Receipt Date: 20250929
  Transmission Date: 20251020
  Serious: No
  Sender: SANDOZ
  Company Number: US-SANDOZ-SDZ2025US043053

PATIENT
  Sex: Female

DRUGS (4)
  1. OMNITROPE [Suspect]
     Active Substance: SOMATROPIN
     Indication: Short stature
     Dosage: 0.9 MG, QD
     Route: 058
     Dates: start: 20250618
  2. OMNITROPE [Suspect]
     Active Substance: SOMATROPIN
     Indication: Short stature
     Dosage: 0.9 MG, QD
     Route: 058
     Dates: start: 20250618
  3. OMNITROPE [Suspect]
     Active Substance: SOMATROPIN
     Route: 065
  4. OMNITROPE [Suspect]
     Active Substance: SOMATROPIN
     Route: 065

REACTIONS (5)
  - Crying [Unknown]
  - Injection site pain [Unknown]
  - Nasopharyngitis [Not Recovered/Not Resolved]
  - Headache [Not Recovered/Not Resolved]
  - Device breakage [Unknown]

NARRATIVE: CASE EVENT DATE: 20250101
